FAERS Safety Report 24760876 (Version 2)
Quarter: 2025Q1

REPORT INFORMATION
  Report Type: Report from Study
  Country: IN (occurrence: None)
  Receive Date: 20241220
  Receipt Date: 20250326
  Transmission Date: 20250408
  Serious: Yes (Other)
  Sender: INCYTE
  Company Number: IN-002147023-NVSC2024IN138787

PATIENT

DRUGS (3)
  1. RUXOLITINIB [Suspect]
     Active Substance: RUXOLITINIB
     Indication: Myelofibrosis
     Dosage: 10 MG, BID
  2. THALIDOMIDE [Concomitant]
     Active Substance: THALIDOMIDE
     Indication: Product used for unknown indication
     Route: 065
  3. PREDNISOLONE [Concomitant]
     Active Substance: PREDNISOLONE
     Indication: Product used for unknown indication
     Route: 065

REACTIONS (11)
  - Anaemia [Not Recovered/Not Resolved]
  - Cytopenia [Unknown]
  - Hyperuricaemia [Unknown]
  - Lower urinary tract symptoms [Unknown]
  - Leukocytosis [Not Recovered/Not Resolved]
  - Hepatomegaly [Unknown]
  - Eastern Cooperative Oncology Group performance status abnormal [Unknown]
  - Pallor [Unknown]
  - Splenomegaly [Unknown]
  - Myeloproliferative neoplasm [Unknown]
  - Thrombocytosis [Not Recovered/Not Resolved]
